FAERS Safety Report 25059218 (Version 1)
Quarter: 2025Q1

REPORT INFORMATION
  Report Type: Spontaneous
  Country: US (occurrence: None)
  Receive Date: 20250307
  Receipt Date: 20250307
  Transmission Date: 20250408
  Serious: Yes (unspecified)
  Sender: FDA-CTU
  Company Number: None

PATIENT
  Age: 31 Year
  Sex: Female
  Weight: 60.75 kg

DRUGS (4)
  1. LAMOTRIGINE [Suspect]
     Active Substance: LAMOTRIGINE
     Indication: Affective disorder
     Route: 048
     Dates: start: 20250217, end: 20250307
  2. LAMOTRIGINE [Suspect]
     Active Substance: LAMOTRIGINE
     Indication: Perinatal depression
  3. VENLAFAXINE [Concomitant]
     Active Substance: VENLAFAXINE HYDROCHLORIDE
  4. Prenatals [Concomitant]

REACTIONS (7)
  - Neck pain [None]
  - Pain [None]
  - Pyrexia [None]
  - Paraesthesia [None]
  - Pruritus [None]
  - Rash erythematous [None]
  - Feeling hot [None]

NARRATIVE: CASE EVENT DATE: 20250307
